FAERS Safety Report 17245734 (Version 1)
Quarter: 2020Q1

REPORT INFORMATION
  Report Type: Spontaneous
  Country: FR (occurrence: FR)
  Receive Date: 20200108
  Receipt Date: 20200108
  Transmission Date: 20200409
  Serious: Yes (Disabling)
  Sender: FDA-Public Use
  Company Number: FR-TEVA-2020-FR-1164102

PATIENT
  Age: 69 Year
  Sex: Female

DRUGS (6)
  1. TEMESTA [Concomitant]
  2. LEVOTHYROX [Concomitant]
     Active Substance: LEVOTHYROXINE
  3. RAMIPRIL. [Concomitant]
     Active Substance: RAMIPRIL
  4. ASPIRINE PROTECT [Suspect]
     Active Substance: ASPIRIN
     Indication: CARDIOVASCULAR EVENT PROPHYLAXIS
     Route: 048
     Dates: end: 20170911
  5. LERCAN 10 MG, COMPRIME PELLICULE SECABLE [Concomitant]
     Active Substance: LERCANIDIPINE HYDROCHLORIDE
  6. IBUPROFENE [Suspect]
     Active Substance: IBUPROFEN
     Indication: HEADACHE
     Route: 048
     Dates: end: 20170911

REACTIONS (2)
  - Frontotemporal dementia [Recovered/Resolved]
  - Cerebral haematoma [Recovered/Resolved with Sequelae]

NARRATIVE: CASE EVENT DATE: 20170911
